FAERS Safety Report 7165878-X (Version None)
Quarter: 2010Q4

REPORT INFORMATION
  Report Type: 
  Country: None (occurrence: None)
  Receive Date: 20101216
  Receipt Date: 20101202
  Transmission Date: 20110411
  Serious: Yes (Other)
  Sender: FDA-Public Use
  Company Number: NL-MYLANLABS-2010S1022010

PATIENT
  Age: 61 Year
  Sex: Female
  Weight: 78 kg

DRUGS (1)
  1. VENLAFAXINE [Suspect]
     Indication: MENOPAUSAL SYMPTOMS
     Dosage: 1 X DAAGS 1- 2 CAPSULES
     Route: 048
     Dates: start: 20100924, end: 20101012

REACTIONS (3)
  - PARAPSORIASIS [None]
  - PITYRIASIS LICHENOIDES ET VARIOLIFORMIS ACUTA [None]
  - PRURITUS [None]
